FAERS Safety Report 7434499-3 (Version None)
Quarter: 2011Q2

REPORT INFORMATION
  Report Type: 
  Country: None (occurrence: None)
  Receive Date: 20110415
  Receipt Date: 20110406
  Transmission Date: 20111010
  Serious: Yes (Death, Hospitalization)
  Sender: FDA-Public Use
  Company Number: VAL_00554_2011

PATIENT
  Age: 61 Year
  Sex: Female

DRUGS (4)
  1. AMITRIPTYLINE HCL [Suspect]
     Indication: POST HERPETIC NEURALGIA
     Dosage: (12.5 MG, AT BEDTIME)
     Dates: start: 20070801
  2. BUTYLSCAPPLAMINE [Concomitant]
  3. CARBAMAZEPINE [Suspect]
     Indication: POST HERPETIC NEURALGIA
     Dosage: (300 MG)
     Dates: start: 20070801, end: 20070101
  4. ANESTHETICS, LOCAL (LOCAL ANESTHETIC) [Suspect]
     Indication: POST HERPETIC NEURALGIA
     Dosage: (AFFECTED  AREA WAS INFILTRATED)
     Dates: start: 20070101

REACTIONS (5)
  - STEVENS-JOHNSON SYNDROME [None]
  - PYREXIA [None]
  - ARTHRALGIA [None]
  - TOXIC EPIDERMAL NECROLYSIS [None]
  - MYALGIA [None]
